FAERS Safety Report 5683809-6 (Version None)
Quarter: 2008Q1

REPORT INFORMATION
  Report Type: 
  Country: None (occurrence: None)
  Receive Date: 20080328
  Receipt Date: 20080317
  Transmission Date: 20080703
  Serious: Yes (Other)
  Sender: FDA-Public Use
  Company Number: DE-JNJFOC-20080303790

PATIENT
  Sex: Male
  Weight: 1 kg

DRUGS (2)
  1. TAVANIC [Suspect]
     Indication: DRUG EXPOSURE DURING PREGNANCY
     Route: 015
  2. ANTIBIOTICS [Concomitant]
     Route: 015

REACTIONS (3)
  - CAESAREAN SECTION [None]
  - DRUG EXPOSURE DURING PREGNANCY [None]
  - PREMATURE BABY [None]
